FAERS Safety Report 10952777 (Version 1)
Quarter: 2015Q1

REPORT INFORMATION
  Report Type: Spontaneous
  Country: US (occurrence: US)
  Receive Date: 20150325
  Receipt Date: 20150325
  Transmission Date: 20150721
  Serious: Yes (Other)
  Sender: FDA-Public Use
  Company Number: US-JNJFOC-20150315090

PATIENT
  Sex: Female
  Weight: 61.69 kg

DRUGS (2)
  1. BENADRYL [Suspect]
     Active Substance: DIPHENHYDRAMINE HYDROCHLORIDE
     Indication: URTICARIA
     Dosage: UPTO 50 MG, 4-6 HOURS.
     Route: 065
     Dates: start: 20150128
  2. BENADRYL [Suspect]
     Active Substance: DIPHENHYDRAMINE HYDROCHLORIDE
     Indication: RASH PRURITIC
     Dosage: UPTO 50 MG, 4-6 HOURS.
     Route: 065
     Dates: start: 20150128

REACTIONS (5)
  - Eye swelling [Unknown]
  - Drug ineffective [Unknown]
  - Condition aggravated [Unknown]
  - Urticaria [Unknown]
  - Swelling face [Unknown]
